FAERS Safety Report 7551006-5 (Version None)
Quarter: 2011Q2

REPORT INFORMATION
  Report Type: 
  Country: None (occurrence: None)
  Receive Date: 20110616
  Receipt Date: 20110606
  Transmission Date: 20111010
  Serious: Yes (Other)
  Sender: FDA-Public Use
  Company Number: DE-ELI_LILLY_AND_COMPANY-DE201106001588

PATIENT
  Sex: Male

DRUGS (5)
  1. CALCIUM CARBONATE [Concomitant]
  2. OPIOIDS [Concomitant]
  3. CORTISONE [Concomitant]
     Dosage: 50 MG, UNK
  4. VITAMIN D [Concomitant]
  5. FORTEO [Suspect]
     Indication: OSTEOPOROSIS
     Dosage: UNK, QD
     Route: 058
     Dates: start: 20100910

REACTIONS (1)
  - TESTICULAR SWELLING [None]
